FAERS Safety Report 9900127 (Version 1)
Quarter: 2014Q1

REPORT INFORMATION
  Report Type: Spontaneous
  Country: US (occurrence: US)
  Receive Date: 20140214
  Receipt Date: 20140214
  Transmission Date: 20141002
  Serious: Yes (Other)
  Sender: FDA-Public Use
  Company Number: US-CUBIST PHARMACEUTICAL, INC.-2014CBST000158

PATIENT
  Sex: 0

DRUGS (5)
  1. CUBICIN [Suspect]
     Indication: STAPHYLOCOCCAL SEPSIS
     Dosage: UNK, UNK, UNK
     Route: 065
  2. CUBICIN [Suspect]
     Indication: PULMONARY EMBOLISM
  3. CUBICIN [Suspect]
     Indication: OFF LABEL USE
  4. CLINDAMYCIN [Suspect]
     Indication: STAPHYLOCOCCAL SEPSIS
     Dosage: UNK, UNK, UNK
     Route: 065
  5. CLINDAMYCIN [Suspect]
     Indication: PULMONARY EMBOLISM

REACTIONS (3)
  - Lung consolidation [Recovering/Resolving]
  - Computerised tomogram abnormal [Recovering/Resolving]
  - Drug ineffective for unapproved indication [Unknown]
